FAERS Safety Report 19226072 (Version 1)
Quarter: 2021Q2

REPORT INFORMATION
  Report Type: Spontaneous
  Country: US (occurrence: US)
  Receive Date: 20210506
  Receipt Date: 20210506
  Transmission Date: 20210717
  Serious: Yes (Other)
  Sender: FDA-Public Use
  Company Number: US-PRINSTON PHARMACEUTICAL INC.-2021PRN00159

PATIENT
  Sex: Female
  Weight: 48.08 kg

DRUGS (2)
  1. CARVEDILOL. [Concomitant]
     Active Substance: CARVEDILOL
  2. HYDROXYZINE HYDROCHLORIDE. [Suspect]
     Active Substance: HYDROXYZINE HYDROCHLORIDE
     Dosage: 12.5 MG, ONCE

REACTIONS (5)
  - Product prescribing error [Recovered/Resolved]
  - Intentional product use issue [Recovered/Resolved]
  - Unevaluable event [Unknown]
  - Hypertension [Unknown]
  - Pruritus [Unknown]
